FAERS Safety Report 4420050-9 (Version None)
Quarter: 2004Q3

REPORT INFORMATION
  Report Type: 
  Country: None (occurrence: None)
  Receive Date: 20040805
  Receipt Date: 20040805
  Transmission Date: 20050211
  Serious: Yes (Other)
  Sender: FDA-Public Use
  Company Number: None

PATIENT
  Age: 40 Year
  Sex: Male
  Weight: 72.5755 kg

DRUGS (1)
  1. ESKALITH [Suspect]
     Indication: BIPOLAR DISORDER
     Dosage: 900 MG BID ORAL
     Route: 048
     Dates: start: 20030701, end: 20040501

REACTIONS (1)
  - STOMACH DISCOMFORT [None]
